FAERS Safety Report 4880292-5 (Version None)
Quarter: 2006Q1

REPORT INFORMATION
  Report Type: 
  Country: None (occurrence: None)
  Receive Date: 20060113
  Receipt Date: 20060105
  Transmission Date: 20060701
  Serious: Yes (Hospitalization)
  Sender: FDA-Public Use
  Company Number: US-ROCHE-431022

PATIENT
  Age: 48 Year
  Sex: Male
  Weight: 107 kg

DRUGS (6)
  1. PEG-INTERFERON ALFA 2A (RO 25-8310) [Suspect]
     Route: 058
     Dates: start: 20051025
  2. RIBAVIRIN [Suspect]
     Route: 048
     Dates: start: 20051125
  3. OXYCONTIN [Concomitant]
     Dosage: TAKEN AS OCCASION REQUIRES
  4. SOMA [Concomitant]
     Dosage: TAKEN AS OCCASION REQUIRES
  5. ASPIRIN [Concomitant]
     Indication: CARDIOVASCULAR EVENT PROPHYLAXIS
     Dosage: TAKEN DAILY
     Dates: start: 20050701
  6. NAPROXEN [Concomitant]
     Dosage: TAKEN AS OCCASION REQUIRES
     Dates: start: 20051023

REACTIONS (1)
  - CONVULSION [None]
